FAERS Safety Report 7782743-5 (Version None)
Quarter: 2011Q3

REPORT INFORMATION
  Report Type: 
  Country: None (occurrence: None)
  Receive Date: 20110927
  Receipt Date: 20110927
  Transmission Date: 20111222
  Serious: Yes (Hospitalization)
  Sender: FDA-Public Use
  Company Number: None

PATIENT
  Sex: Female
  Weight: 98 kg

DRUGS (2)
  1. CISPLATIN [Suspect]
     Dosage: 100 MG
  2. PEMETREXED [Suspect]
     Dosage: 1000 MG

REACTIONS (13)
  - BLOOD ALKALINE PHOSPHATASE INCREASED [None]
  - PSEUDOMONAS TEST POSITIVE [None]
  - HAEMOGLOBIN DECREASED [None]
  - BLOOD PHOSPHORUS INCREASED [None]
  - URETERIC OBSTRUCTION [None]
  - BLOOD POTASSIUM DECREASED [None]
  - KIDNEY INFECTION [None]
  - PLATELET COUNT INCREASED [None]
  - HAEMATOCRIT DECREASED [None]
  - BLOOD ALBUMIN DECREASED [None]
  - ENTEROCOCCUS TEST POSITIVE [None]
  - CERVIX CARCINOMA RECURRENT [None]
  - RENAL FAILURE ACUTE [None]
